FAERS Safety Report 20648719 (Version 1)
Quarter: 2022Q1

REPORT INFORMATION
  Report Type: Report from Study
  Country: DE (occurrence: DE)
  Receive Date: 20220329
  Receipt Date: 20220329
  Transmission Date: 20220423
  Serious: Yes (Other)
  Sender: FDA-Public Use
  Company Number: DE-PFIZER INC-202200418219

PATIENT

DRUGS (2)
  1. METHYLPREDNISOLONE [Suspect]
     Active Substance: METHYLPREDNISOLONE
     Indication: Optic neuritis
     Dosage: 1000 MG, 1X/DAY
     Route: 042
  2. EPOETIN ALFA [Suspect]
     Active Substance: ERYTHROPOIETIN
     Indication: Optic neuritis
     Dosage: 33000 IU, 1X/DAY
     Route: 042

REACTIONS (1)
  - Venous thrombosis [Recovered/Resolved]
